FAERS Safety Report 5786206-8 (Version None)
Quarter: 2008Q2

REPORT INFORMATION
  Report Type: 
  Country: None (occurrence: None)
  Receive Date: 20080624
  Receipt Date: 20080620
  Transmission Date: 20081010
  Serious: Yes (Life-Threatening, Hospitalization)
  Sender: FDA-Public Use
  Company Number: DK-ASTRAZENECA-2008SE03157

PATIENT
  Age: 15876 Day
  Sex: Female
  Weight: 64 kg

DRUGS (1)
  1. ZOLADEX [Suspect]
     Indication: UTERINE LEIOMYOMA
     Route: 058
     Dates: start: 20080325

REACTIONS (7)
  - ASTHENIA [None]
  - BLOOD PRESSURE INCREASED [None]
  - DIZZINESS [None]
  - DYSPNOEA [None]
  - HEART RATE IRREGULAR [None]
  - NAUSEA [None]
  - PALPITATIONS [None]
